FAERS Safety Report 7409817-2 (Version None)
Quarter: 2011Q2

REPORT INFORMATION
  Report Type: 
  Country: None (occurrence: None)
  Receive Date: 20110412
  Receipt Date: 20110406
  Transmission Date: 20111010
  Serious: Yes (Other)
  Sender: FDA-Public Use
  Company Number: JP-PFIZER INC-2010163157

PATIENT
  Age: 81 Year
  Sex: Female

DRUGS (13)
  1. LYRICA [Suspect]
     Dosage: 50 MG DAILY
     Route: 048
     Dates: start: 20101104, end: 20101112
  2. MAG-LAX [Concomitant]
     Indication: CONSTIPATION
     Dosage: UNK
     Route: 048
     Dates: start: 20050909
  3. LYRICA [Suspect]
     Dosage: 100 MG DAILY
     Route: 048
     Dates: start: 20101025, end: 20101103
  4. NORVASC [Concomitant]
     Indication: HYPERTENSION
     Dosage: UNK
     Route: 048
     Dates: start: 20000506
  5. ALENDRONATE SODIUM [Concomitant]
     Indication: OSTEOPOROSIS
     Dosage: UNK
     Route: 048
     Dates: start: 20070920
  6. LYRICA [Suspect]
     Indication: PAIN IN EXTREMITY
     Dosage: 50 MG DAILY
     Route: 048
     Dates: start: 20101022, end: 20101024
  7. PURSENNID [Concomitant]
     Indication: CONSTIPATION
     Dosage: UNK
     Route: 048
     Dates: start: 20050807
  8. FERROUS CITRATE [Concomitant]
     Indication: ANAEMIA
     Dosage: UNK
     Route: 048
     Dates: start: 19891002
  9. ASPARTATE CALCIUM [Concomitant]
     Indication: OSTEOPOROSIS
     Dosage: UNK
     Route: 048
     Dates: start: 20050404
  10. ASPIRIN [Concomitant]
     Indication: ANGINA PECTORIS
     Dosage: UNK
     Route: 048
     Dates: start: 20031108
  11. MEILAX [Concomitant]
     Indication: ANXIETY
     Dosage: UNK
     Route: 048
     Dates: start: 20080112
  12. LIPITOR [Concomitant]
     Indication: LIPID METABOLISM DISORDER
     Dosage: UNK
     Route: 048
     Dates: start: 19990720
  13. ALFAROL [Concomitant]
     Indication: OSTEOPOROSIS
     Dosage: UNK
     Route: 048
     Dates: start: 20050404

REACTIONS (3)
  - MENTAL DISORDER [None]
  - GAIT DISTURBANCE [None]
  - CONSTIPATION [None]
